FAERS Safety Report 8006815-5 (Version None)
Quarter: 2011Q4

REPORT INFORMATION
  Report Type: 
  Country: None (occurrence: None)
  Receive Date: 20111227
  Receipt Date: 20111222
  Transmission Date: 20120403
  Serious: Yes (Hospitalization, Congenital Anomaly)
  Sender: FDA-Public Use
  Company Number: PHEH2010US02723

PATIENT
  Sex: Male
  Weight: 61 kg

DRUGS (4)
  1. EXJADE [Suspect]
     Indication: SICKLE CELL ANAEMIA
     Dosage: 1500 MG, UNK
     Route: 048
     Dates: start: 20081103
  2. FLOVENT [Concomitant]
     Dosage: 110 UG, BID
     Route: 048
     Dates: start: 20090518
  3. ALBUTEROL [Concomitant]
     Dosage: 90 MG, UNK
     Route: 048
     Dates: start: 20090518
  4. EXJADE [Suspect]
     Indication: IRON OVERLOAD
     Dosage: 2000 MG, DAILY
     Dates: start: 20110830

REACTIONS (5)
  - TREATMENT NONCOMPLIANCE [None]
  - HYPERBILIRUBINAEMIA [None]
  - CHOLELITHIASIS [None]
  - HERNIA [None]
  - ABDOMINAL PAIN [None]
